FAERS Safety Report 8073568-4 (Version None)
Quarter: 2012Q1

REPORT INFORMATION
  Report Type: 
  Country: None (occurrence: None)
  Receive Date: 20120126
  Receipt Date: 20120113
  Transmission Date: 20120608
  Serious: Yes (Hospitalization)
  Sender: FDA-Public Use
  Company Number: US-BAYER-201033280NA

PATIENT
  Age: 38 Year
  Sex: Female
  Weight: 63 kg

DRUGS (15)
  1. YAZ [Suspect]
     Dosage: UNK
     Dates: start: 20080101, end: 20090101
  2. VERAMYST [Concomitant]
     Dosage: UNK
     Dates: start: 20090607, end: 20090804
  3. AVELOX [Concomitant]
     Dosage: 400 MG, UNK
     Dates: start: 20090518
  4. YAZ [Suspect]
     Indication: CONTRACEPTION
     Dosage: 1 U, QD
     Route: 048
     Dates: start: 20070101, end: 20080101
  5. DROSPIRENONE AND ETHINYL ESTRADIOL [Suspect]
     Indication: CONTRACEPTION
     Dosage: 1 U, QD
     Route: 048
     Dates: start: 20080101, end: 20090101
  6. VERAMYST [Concomitant]
     Dosage: UNK
     Dates: start: 20070101, end: 20100101
  7. YASMIN [Suspect]
     Dosage: UNK
     Dates: start: 20090310, end: 20090819
  8. BUTALBITAL ACETAMINOPHEN AND CAFFEINE [Concomitant]
     Dosage: UNK
     Dates: start: 20050101, end: 20100101
  9. HALOBETASOL PROPIONATE [Concomitant]
  10. FIORICET [Concomitant]
  11. ZITHROMAX [Concomitant]
  12. AZITHROMYCIN [Concomitant]
     Dosage: 500 MG, UNK
     Dates: start: 20090709, end: 20090812
  13. FLUCONAZOLE [Concomitant]
     Dosage: 150 MG, UNK
     Dates: start: 20090728
  14. IBUPROFEN [Concomitant]
  15. LEXAPRO [Concomitant]
     Dosage: UNK
     Dates: start: 20070101, end: 20100101

REACTIONS (7)
  - OEDEMA PERIPHERAL [None]
  - THROMBOSIS [None]
  - PULMONARY THROMBOSIS [None]
  - PULMONARY EMBOLISM [None]
  - DEEP VEIN THROMBOSIS [None]
  - PAIN [None]
  - ABASIA [None]
